FAERS Safety Report 6915893-3 (Version None)
Quarter: 2010Q3

REPORT INFORMATION
  Report Type: 
  Country: None (occurrence: None)
  Receive Date: 20100804
  Receipt Date: 20100720
  Transmission Date: 20110219
  Serious: Yes (Other)
  Sender: FDA-Public Use
  Company Number: A-CH2010-38235

PATIENT
  Age: 26 Year
  Sex: Female

DRUGS (4)
  1. TRACLEER [Suspect]
     Indication: MIXED CONNECTIVE TISSUE DISEASE
     Dosage: ORAL
     Route: 048
  2. RITUXIMAB (RITUXIMAB) [Suspect]
     Dosage: 1 G, INTRAVENOUS
     Route: 042
     Dates: start: 20060801
  3. VENTAVIS [Concomitant]
  4. SILDENAFIL CITRATE [Concomitant]

REACTIONS (8)
  - ARTHRALGIA [None]
  - CONDITION AGGRAVATED [None]
  - MALAISE [None]
  - OFF LABEL USE [None]
  - PYREXIA [None]
  - RAYNAUD'S PHENOMENON [None]
  - SERUM SICKNESS [None]
  - SKIN NECROSIS [None]
